FAERS Safety Report 6439652-3 (Version None)
Quarter: 2009Q4

REPORT INFORMATION
  Report Type: 
  Country: None (occurrence: None)
  Receive Date: 20091113
  Receipt Date: 20091103
  Transmission Date: 20100525
  Serious: Yes (Other)
  Sender: FDA-Public Use
  Company Number: US-AMGEN-US351606

PATIENT
  Age: 12 Year
  Sex: Female
  Weight: 49 kg

DRUGS (4)
  1. ENBREL [Suspect]
     Indication: JUVENILE ARTHRITIS
     Route: 058
     Dates: start: 20080801, end: 20081003
  2. METHOTREXATE SODIUM [Suspect]
     Indication: JUVENILE ARTHRITIS
     Route: 048
     Dates: start: 20080623, end: 20080910
  3. LEFLUNOMIDE [Suspect]
     Route: 065
     Dates: start: 20080910
  4. FOLIC ACID [Concomitant]
     Dates: start: 20080623

REACTIONS (2)
  - ATAXIA [None]
  - MEMORY IMPAIRMENT [None]
